FAERS Safety Report 5508964-X (Version None)
Quarter: 2007Q4

REPORT INFORMATION
  Report Type: 
  Country: None (occurrence: None)
  Receive Date: 20071107
  Receipt Date: 20071030
  Transmission Date: 20080405
  Serious: Yes (Other)
  Sender: FDA-Public Use
  Company Number: JP-MERCK-0708USA01376

PATIENT
  Age: 73 Year
  Sex: Female
  Weight: 82 kg

DRUGS (14)
  1. HYZAAR [Suspect]
     Indication: HYPERTENSION
     Route: 048
     Dates: start: 20070424, end: 20070820
  2. LASIX [Concomitant]
     Indication: HYPERTENSION
     Route: 048
  3. DIART [Concomitant]
     Route: 048
  4. GASTROM [Concomitant]
     Route: 065
  5. ASCATE [Concomitant]
     Route: 048
  6. KOLANTYL [Concomitant]
     Route: 048
  7. ALLORIN [Concomitant]
     Route: 048
  8. ALLOPURINOL [Concomitant]
     Route: 048
  9. THEO-DUR [Concomitant]
     Route: 048
  10. FORSENID [Concomitant]
     Route: 048
  11. OMEPRAZOLE [Concomitant]
     Route: 048
  12. ETIZOLAM [Concomitant]
     Route: 048
  13. BETAPRESSIN [Concomitant]
     Route: 048
  14. [THERAPY UNSPECIFIED] [Suspect]
     Route: 065

REACTIONS (3)
  - ALTERED STATE OF CONSCIOUSNESS [None]
  - ASTHENIA [None]
  - DIZZINESS POSTURAL [None]
